FAERS Safety Report 5067852-6 (Version None)
Quarter: 2006Q3

REPORT INFORMATION
  Report Type: 
  Country: None (occurrence: None)
  Receive Date: 20060728
  Receipt Date: 20060713
  Transmission Date: 20061208
  Serious: Yes (Hospitalization)
  Sender: FDA-Public Use
  Company Number: FR200607002509

PATIENT
  Age: 77 Year
  Sex: Female

DRUGS (9)
  1. FORTEO [Suspect]
     Indication: OSTEOPOROSIS
     Dosage: 20 UG DAILY (1/D) SUBCUTANEOUS
     Route: 058
     Dates: start: 20051001, end: 20060627
  2. FORTEO PEN (FORTEO PEN) [Concomitant]
  3. PREDNISONE TAB [Concomitant]
  4. CORDARONE [Concomitant]
  5. ASPIRIN [Concomitant]
  6. FRACTAL (FLUVASTATIN) [Concomitant]
  7. ZOLPIDEM TARTRATE [Concomitant]
  8. NOVATREX (AZITHROMYCIN) [Concomitant]
  9. SPECIAFOLDINE (FOLIC ACID) [Concomitant]

REACTIONS (1)
  - CHEST PAIN [None]
